FAERS Safety Report 7563546-3 (Version None)
Quarter: 2011Q2

REPORT INFORMATION
  Report Type: 
  Country: None (occurrence: None)
  Receive Date: 20110622
  Receipt Date: 20110607
  Transmission Date: 20111010
  Serious: Yes (Death)
  Sender: FDA-Public Use
  Company Number: GB-WATSON-2011-07768

PATIENT
  Sex: Female

DRUGS (4)
  1. TOPIRAMATE [Suspect]
     Indication: EPILEPSY
     Dosage: UNK
     Route: 048
  2. VALPROATE SODIUM [Concomitant]
     Indication: EPILEPSY
     Dosage: UNK
     Route: 065
  3. CARBAMAZEPINE [Concomitant]
     Indication: EPILEPSY
     Dosage: UNK
     Route: 065
  4. PHENOBARBITAL [Concomitant]
     Indication: EPILEPSY
     Dosage: UNK
     Route: 065

REACTIONS (1)
  - UNEVALUABLE EVENT [None]
